FAERS Safety Report 11177193 (Version 1)
Quarter: 2015Q2

REPORT INFORMATION
  Report Type: Spontaneous
  Country: US (occurrence: None)
  Receive Date: 20150608
  Receipt Date: 20150608
  Transmission Date: 20150821
  Serious: No
  Sender: FDA-Public Use
  Company Number: None

PATIENT
  Age: 29 Year
  Sex: Female
  Weight: 84.82 kg

DRUGS (4)
  1. MIRENA [Suspect]
     Active Substance: LEVONORGESTREL
     Dates: start: 20120820, end: 20150604
  2. LEVOTHYROXIN [Concomitant]
     Active Substance: LEVOTHYROXINE
  3. PARAGARD T 380A [Concomitant]
     Active Substance: COPPER
  4. DAILY VITAMIN [Concomitant]
     Active Substance: VITAMINS

REACTIONS (6)
  - Weight loss poor [None]
  - Mood swings [None]
  - Weight increased [None]
  - Acne [None]
  - Hair growth abnormal [None]
  - Alopecia [None]

NARRATIVE: CASE EVENT DATE: 20150604
